FAERS Safety Report 5870320-2 (Version None)
Quarter: 2008Q3

REPORT INFORMATION
  Report Type: 
  Country: None (occurrence: None)
  Receive Date: 20080904
  Receipt Date: 20070911
  Transmission Date: 20090109
  Serious: No
  Sender: FDA-Public Use
  Company Number: US-BRISTOL-MYERS SQUIBB COMPANY-13904032

PATIENT
  Age: 44 Year
  Sex: Male
  Weight: 122 kg

DRUGS (1)
  1. DEFINITY [Suspect]
     Dates: start: 20070911, end: 20070911

REACTIONS (4)
  - HYPERHIDROSIS [None]
  - NAUSEA [None]
  - URTICARIA [None]
  - VOMITING [None]
